FAERS Safety Report 5352199-0 (Version None)
Quarter: 2007Q2

REPORT INFORMATION
  Report Type: 
  Country: None (occurrence: None)
  Receive Date: 20070611
  Receipt Date: 20070607
  Transmission Date: 20071010
  Serious: Yes (Life-Threatening, Hospitalization)
  Sender: FDA-Public Use
  Company Number: PHEH2007US04107

PATIENT
  Age: 61 Year
  Sex: Female
  Weight: 48.526 kg

DRUGS (7)
  1. ZELNORM [Suspect]
     Indication: CONSTIPATION
     Dosage: 6 MG, BID
     Route: 048
     Dates: start: 20060601, end: 20070401
  2. COZAAR [Concomitant]
     Indication: HYPERTENSION
     Dosage: 50 MG, BID
     Route: 048
     Dates: start: 20050101, end: 20070601
  3. TOPROL-XL [Concomitant]
     Dosage: 50 MG, BID
     Route: 048
  4. KEPPRA [Concomitant]
     Indication: CONVULSION
     Dosage: 500 MG, BID
     Route: 048
     Dates: start: 20050101, end: 20070601
  5. ZOLOFT [Concomitant]
     Indication: DEPRESSION
     Dosage: 50 MG, QD
     Route: 048
     Dates: start: 20050101, end: 20070601
  6. INSULIN [Concomitant]
     Indication: DIABETES MELLITUS
  7. LIPITOR [Concomitant]
     Indication: BLOOD CHOLESTEROL
     Dosage: 40 MG, QD
     Route: 048
     Dates: start: 20050101, end: 20070601

REACTIONS (1)
  - MYOCARDIAL INFARCTION [None]
